FAERS Safety Report 20057304 (Version 1)
Quarter: 2021Q4

REPORT INFORMATION
  Report Type: Report from Study
  Country: IT (occurrence: IT)
  Receive Date: 20211111
  Receipt Date: 20211111
  Transmission Date: 20220303
  Serious: Yes (Other)
  Sender: FDA-Public Use
  Company Number: None

PATIENT
  Age: 71 Year
  Sex: Female
  Weight: 54 kg

DRUGS (4)
  1. FLUOROURACIL [Suspect]
     Active Substance: FLUOROURACIL
     Indication: Adenocarcinoma
     Dosage: 3500 MG, FORM STRENGTH: 5 G / 100 ML
     Route: 042
     Dates: start: 20210909
  2. FLUOROURACIL [Suspect]
     Active Substance: FLUOROURACIL
     Indication: Adenocarcinoma of appendix
     Dosage: 580 MG, FORM STRENGTH: 5 G / 100 ML
     Route: 040
  3. OXALIPLATIN [Suspect]
     Active Substance: OXALIPLATIN
     Indication: Adenocarcinoma of appendix
     Dosage: 120 MG
     Route: 065
     Dates: start: 20210909
  4. LEVOLEUCOVORIN CALCIUM [Concomitant]
     Active Substance: LEVOLEUCOVORIN CALCIUM
     Indication: Adenocarcinoma of appendix
     Dosage: 290 MG
     Dates: start: 20210909

REACTIONS (2)
  - Neutropenia [Unknown]
  - Transaminases increased [Unknown]

NARRATIVE: CASE EVENT DATE: 20211021
